FAERS Safety Report 6077334-0 (Version None)
Quarter: 2009Q1

REPORT INFORMATION
  Report Type: 
  Country: None (occurrence: None)
  Receive Date: 20090213
  Receipt Date: 20090206
  Transmission Date: 20090719
  Serious: Yes (Hospitalization)
  Sender: FDA-Public Use
  Company Number: B0557914A

PATIENT

DRUGS (1)
  1. ALKERAN [Suspect]
     Route: 042

REACTIONS (1)
  - FEBRILE NEUTROPENIA [None]
